FAERS Safety Report 13876567 (Version 5)
Quarter: 2018Q2

REPORT INFORMATION
  Report Type: Report from Study
  Country: US (occurrence: US)
  Receive Date: 20170817
  Receipt Date: 20180430
  Transmission Date: 20180711
  Serious: No
  Sender: FDA-Public Use
  Company Number: PHEH2017US025823

PATIENT
  Age: 58 Year
  Sex: Female

DRUGS (1)
  1. GILENYA [Suspect]
     Active Substance: FINGOLIMOD HYDROCHLORIDE
     Indication: MULTIPLE SCLEROSIS
     Dosage: 0.5 MG, QD
     Route: 048
     Dates: start: 2017

REACTIONS (16)
  - Weight decreased [Unknown]
  - Weight increased [Unknown]
  - Nausea [Unknown]
  - Decreased appetite [Unknown]
  - Dental caries [Unknown]
  - Peripheral swelling [Unknown]
  - Ear infection [Unknown]
  - Vomiting [Unknown]
  - Fall [Unknown]
  - Headache [Unknown]
  - Asthenia [Unknown]
  - Oropharyngeal pain [Unknown]
  - Dizziness [Unknown]
  - Ageusia [Unknown]
  - Influenza [Unknown]
  - Urinary tract infection [Unknown]

NARRATIVE: CASE EVENT DATE: 20171208
